FAERS Safety Report 15384697 (Version 1)
Quarter: 2018Q3

REPORT INFORMATION
  Report Type: Spontaneous
  Country: US (occurrence: US)
  Receive Date: 20180907
  Receipt Date: 20180907
  Transmission Date: 20181010
  Serious: Yes (Other)
  Sender: FDA-Public Use
  Company Number: None

PATIENT
  Age: 49 Year
  Sex: Male
  Weight: 66.15 kg

DRUGS (1)
  1. DESCOVY [Suspect]
     Active Substance: EMTRICITABINE\TENOFOVIR ALAFENAMIDE FUMARATE
     Indication: HIV INFECTION
     Route: 048
     Dates: start: 20170315, end: 20180907

REACTIONS (6)
  - Peripheral swelling [None]
  - Paraesthesia oral [None]
  - Lip swelling [None]
  - Angioedema [None]
  - Rash [None]
  - Product lot number issue [None]

NARRATIVE: CASE EVENT DATE: 20180829
